FAERS Safety Report 17584320 (Version 4)
Quarter: 2021Q1

REPORT INFORMATION
  Report Type: Spontaneous
  Country: FR (occurrence: FR)
  Receive Date: 20200326
  Receipt Date: 20210104
  Transmission Date: 20210419
  Serious: Yes (Hospitalization)
  Sender: FDA-Public Use
  Company Number: ALC2020FR002491

PATIENT

DRUGS (6)
  1. KETOPROFEN. [Suspect]
     Active Substance: KETOPROFEN
     Indication: GAIT DISTURBANCE
     Dosage: 200 MG, QD
     Route: 048
     Dates: start: 20190718, end: 20190724
  2. IOPAMIRON [Suspect]
     Active Substance: IOPAMIDOL
     Indication: JOINT INJECTION
     Dosage: 1 ML, QD
     Route: 014
     Dates: start: 20190719, end: 20190719
  3. BETADINE [Suspect]
     Active Substance: POVIDONE-IODINE
     Indication: ANTIBIOTIC PROPHYLAXIS
     Dosage: 1 DF, QD
     Route: 061
     Dates: start: 20190719, end: 20190719
  4. XYLOCAINE [Suspect]
     Active Substance: LIDOCAINE HYDROCHLORIDE
     Indication: LOCAL ANAESTHESIA
     Dosage: UNK
     Route: 014
     Dates: start: 20190719, end: 20190719
  5. DIPROSTENE [Suspect]
     Active Substance: BETAMETHASONE DIPROPIONATE\BETAMETHASONE SODIUM PHOSPHATE
     Indication: JOINT INJECTION
     Dosage: 1 DF, QD
     Route: 014
     Dates: start: 20190719, end: 20190719
  6. DOLIPRANE [Suspect]
     Active Substance: ACETAMINOPHEN
     Indication: GAIT DISTURBANCE
     Dosage: 3 G, QD
     Route: 048
     Dates: start: 20190718, end: 20190724

REACTIONS (1)
  - Pancreatitis [Recovered/Resolved]

NARRATIVE: CASE EVENT DATE: 20190722
